FAERS Safety Report 10466290 (Version 1)
Quarter: 2014Q3

REPORT INFORMATION
  Report Type: Spontaneous
  Country: US (occurrence: US)
  Receive Date: 20140922
  Receipt Date: 20140922
  Transmission Date: 20150326
  Serious: No
  Sender: FDA-Public Use
  Company Number: US-009507513-1409USA004522

PATIENT
  Age: 17 Year
  Sex: Male

DRUGS (2)
  1. TEMODAR [Suspect]
     Active Substance: TEMOZOLOMIDE
     Indication: CHEMOTHERAPY
     Dosage: UNK
     Route: 048
     Dates: start: 200512
  2. TEMODAR [Suspect]
     Active Substance: TEMOZOLOMIDE
     Dosage: UNK
     Dates: start: 200812

REACTIONS (1)
  - No therapeutic response [Unknown]
